FAERS Safety Report 8854050 (Version 1)
Quarter: 2012Q4

REPORT INFORMATION
  Report Type: 
  Country: CA (occurrence: CA)
  Receive Date: 20121022
  Receipt Date: 20121022
  Transmission Date: 20130627
  Serious: Yes (Death)
  Sender: FDA-Public Use
  Company Number: CA-CELGENEUS-028-21880-12100555

PATIENT
  Age: 60 Year
  Sex: Male

DRUGS (9)
  1. REVLIMID [Suspect]
     Indication: MULTIPLE MYELOMA
     Route: 048
     Dates: start: 20110401, end: 201106
  2. REVLIMID [Suspect]
     Route: 048
     Dates: start: 201108, end: 201205
  3. REVLIMID [Suspect]
     Route: 048
     Dates: start: 201208, end: 201209
  4. THALOMID [Suspect]
     Indication: MULTIPLE MYELOMA
     Dosage: 1000 Milligram
     Dates: start: 20121004, end: 20121017
  5. DEXAMETHASONE [Concomitant]
     Indication: MULTIPLE MYELOMA
     Route: 065
     Dates: start: 201104, end: 201106
  6. DEXAMETHASONE [Concomitant]
     Route: 065
     Dates: start: 201108, end: 201205
  7. DEXAMETHASONE [Concomitant]
     Route: 065
     Dates: start: 201208, end: 201209
  8. CYCLOPHOSPHAMIDE [Concomitant]
     Indication: MULTIPLE MYELOMA
     Dosage: 5 milligram/sq. meter
     Route: 065
     Dates: start: 201108
  9. MELPHALAN [Concomitant]
     Indication: MULTIPLE MYELOMA
     Dosage: 200 milligram/sq. meter
     Route: 065
     Dates: start: 201206

REACTIONS (2)
  - Death [Fatal]
  - Plasma cell myeloma [Unknown]
